FAERS Safety Report 4348632-3 (Version None)
Quarter: 2004Q2

REPORT INFORMATION
  Report Type: 
  Country: None (occurrence: None)
  Receive Date: 20040423
  Receipt Date: 20040416
  Transmission Date: 20050107
  Serious: Yes (Death)
  Sender: FDA-Public Use
  Company Number: 2004SE02146

PATIENT
  Age: 83 Year
  Sex: Female

DRUGS (8)
  1. ZESTRIL [Suspect]
     Indication: AGE INDETERMINATE MYOCARDIAL INFARCTION
  2. GLUCOPHAGE [Suspect]
     Indication: DIABETES MELLITUS
     Dosage: 400 MG QID PO
     Route: 048
  3. OVESTERIN [Concomitant]
  4. INSULIN MIXTARD [Concomitant]
  5. INSULIN INSULATARD NPH NORDISK [Concomitant]
  6. ALBYL-E [Concomitant]
  7. NOBLIGAN [Concomitant]
  8. FUROSEMIDE [Concomitant]

REACTIONS (5)
  - CARDIAC FAILURE [None]
  - DEHYDRATION [None]
  - HYPOTENSION [None]
  - LACTIC ACIDOSIS [None]
  - RENAL FAILURE [None]
